FAERS Safety Report 5489769-5 (Version None)
Quarter: 2007Q4

REPORT INFORMATION
  Report Type: 
  Country: None (occurrence: None)
  Receive Date: 20071010
  Receipt Date: 20061016
  Transmission Date: 20080405
  Serious: Yes (Other)
  Sender: FDA-Public Use
  Company Number: 2007S1000028

PATIENT
  Age: 12 Year
  Sex: Female

DRUGS (1)
  1. DARVON [Suspect]

REACTIONS (1)
  - HALLUCINATION [None]
